FAERS Safety Report 17706054 (Version 2)
Quarter: 2020Q2

REPORT INFORMATION
  Report Type: Spontaneous
  Country: CN (occurrence: CN)
  Receive Date: 20200424
  Receipt Date: 20200504
  Transmission Date: 20200714
  Serious: Yes (Death, Life-Threatening, Hospitalization, Other)
  Sender: FDA-Public Use
  Company Number: CN-VALIDUS PHARMACEUTICALS LLC-CN-2020VAL000317

PATIENT

DRUGS (2)
  1. CEFOTAXIME SODIUM [Suspect]
     Active Substance: CEFOTAXIME SODIUM
     Indication: COUGH
     Dosage: UNK
     Route: 065
  2. CEFOTAXIME SODIUM [Suspect]
     Active Substance: CEFOTAXIME SODIUM
     Dosage: UNK
     Route: 065

REACTIONS (36)
  - Skin exfoliation [Fatal]
  - Enterocolitis [Fatal]
  - Intestinal ulcer [Fatal]
  - Skin lesion [Fatal]
  - Rales [Fatal]
  - Respiratory failure [Fatal]
  - Malnutrition [Fatal]
  - Septic shock [Fatal]
  - Klebsiella infection [Fatal]
  - Lower respiratory tract congestion [Fatal]
  - Wheezing [Fatal]
  - Dyspnoea [Fatal]
  - Gastrointestinal haemorrhage [Fatal]
  - Haematochezia [Fatal]
  - Diarrhoea haemorrhagic [Fatal]
  - Rash vesicular [Fatal]
  - Pyrexia [Fatal]
  - Rash [Fatal]
  - Obliterative bronchiolitis [Fatal]
  - Candida infection [Fatal]
  - Respiratory distress [Fatal]
  - Multiple organ dysfunction syndrome [Fatal]
  - SJS-TEN overlap [Fatal]
  - Diarrhoea [Fatal]
  - Liver injury [Fatal]
  - Hepatomegaly [Fatal]
  - Hypoproteinaemia [Fatal]
  - Gastrointestinal sounds abnormal [Fatal]
  - Gastrointestinal erosion [Fatal]
  - Hypokalaemia [Fatal]
  - Skin hyperpigmentation [Fatal]
  - Cough [Fatal]
  - Pneumonia [Fatal]
  - Gastrointestinal mucosa hyperaemia [Fatal]
  - Abdominal distension [Fatal]
  - Intestinal congestion [Fatal]
